FAERS Safety Report 13402417 (Version 2)
Quarter: 2017Q2

REPORT INFORMATION
  Report Type: Spontaneous
  Country: US (occurrence: US)
  Receive Date: 20170404
  Receipt Date: 20170414
  Transmission Date: 20170830
  Serious: Yes (Other)
  Sender: FDA-Public Use
  Company Number: US-ALLERGAN-1704472US

PATIENT
  Age: 87 Year
  Sex: Female
  Weight: 97.51 kg

DRUGS (7)
  1. METFORMIN [Concomitant]
     Active Substance: METFORMIN HYDROCHLORIDE
     Indication: TYPE 2 DIABETES MELLITUS
     Dosage: 500 MG, QD
  2. TRAMADOL. [Suspect]
     Active Substance: TRAMADOL
     Indication: RESTLESS LEGS SYNDROME
     Dosage: 4 PILLS, QD
     Dates: start: 1999
  3. ARMOUR THYROID [Suspect]
     Active Substance: THYROID, PORCINE
     Indication: THYROID CANCER
     Dosage: 60 MG BID EXCEPT WEDNESDAYS AND SUNDAYS 60 MG
     Route: 048
     Dates: start: 1970
  4. GLIMEPIRIDE. [Concomitant]
     Active Substance: GLIMEPIRIDE
     Indication: TYPE 2 DIABETES MELLITUS
     Dosage: UNK
  5. FUROSEMIDE. [Concomitant]
     Active Substance: FUROSEMIDE
     Indication: DIURETIC THERAPY
     Dosage: UNK
  6. ARMOUR THYROID [Suspect]
     Active Substance: THYROID, PORCINE
     Indication: THYROIDECTOMY
  7. LISINOPRIL. [Concomitant]
     Active Substance: LISINOPRIL
     Indication: HYPERTENSION
     Dosage: UNK

REACTIONS (8)
  - Drug dose omission [Unknown]
  - Restless legs syndrome [Not Recovered/Not Resolved]
  - Breast cancer [Unknown]
  - Alopecia [Recovered/Resolved]
  - Intentional product use issue [Unknown]
  - Thyroid function test abnormal [Recovered/Resolved]
  - Blood pressure increased [Not Recovered/Not Resolved]
  - Inhibitory drug interaction [Recovered/Resolved]

NARRATIVE: CASE EVENT DATE: 1999
